FAERS Safety Report 8240314-0 (Version None)
Quarter: 2012Q1

REPORT INFORMATION
  Report Type: 
  Country: None (occurrence: None)
  Receive Date: 20120328
  Receipt Date: 20120320
  Transmission Date: 20120608
  Serious: Yes (Other)
  Sender: FDA-Public Use
  Company Number: DE-JNJFOC-20120308853

PATIENT
  Age: 43 Year
  Sex: Female

DRUGS (1)
  1. XEPLION [Suspect]
     Indication: PSYCHOTIC DISORDER
     Route: 030
     Dates: start: 20110915

REACTIONS (3)
  - PSYCHOTIC DISORDER [None]
  - SYNCOPE [None]
  - DEPRESSED LEVEL OF CONSCIOUSNESS [None]
